FAERS Safety Report 8517911-8 (Version None)
Quarter: 2012Q3

REPORT INFORMATION
  Report Type: 
  Country: None (occurrence: None)
  Receive Date: 20120718
  Receipt Date: 20110714
  Transmission Date: 20120928
  Serious: No
  Sender: FDA-Public Use
  Company Number: US-BRISTOL-MYERS SQUIBB COMPANY-15902869

PATIENT
  Age: 82 Year
  Sex: Female

DRUGS (9)
  1. XALATAN [Concomitant]
     Dosage: EYE DROPS
  2. ASACOL [Concomitant]
  3. COUMADIN [Suspect]
     Dosage: AS DIRECTED
  4. METOCLOPRAMIDE [Concomitant]
  5. ADVAIR DISKUS 100/50 [Concomitant]
  6. PHENERGAN HCL [Concomitant]
     Dosage: PHENERGAN SUPPOSITORIES
  7. PREDNISONE [Concomitant]
  8. SUCRALFATE [Concomitant]
  9. PROTONIX [Concomitant]

REACTIONS (1)
  - COELIAC DISEASE [None]
